FAERS Safety Report 5990753-3 (Version None)
Quarter: 2008Q4

REPORT INFORMATION
  Report Type: 
  Country: None (occurrence: None)
  Receive Date: 20081211
  Receipt Date: 20081209
  Transmission Date: 20090506
  Serious: Yes (Death)
  Sender: FDA-Public Use
  Company Number: US-RB-004636-08

PATIENT
  Age: 26 Year
  Sex: Male

DRUGS (3)
  1. SUBOXONE [Suspect]
     Route: 060
     Dates: start: 20060101, end: 20080901
  2. XANAX [Suspect]
     Indication: ANXIETY
     Route: 048
  3. XANAX [Suspect]
     Indication: MUSCLE SPASMS
     Route: 048

REACTIONS (1)
  - DEATH [None]
